FAERS Safety Report 7653314-6 (Version None)
Quarter: 2011Q3

REPORT INFORMATION
  Report Type: 
  Country: None (occurrence: None)
  Receive Date: 20110803
  Receipt Date: 20110718
  Transmission Date: 20111222
  Serious: No
  Sender: FDA-Public Use
  Company Number: US-BAYER-2011-063323

PATIENT
  Sex: Male

DRUGS (2)
  1. ALEVE (CAPLET) [Suspect]
     Indication: COUGH
  2. COUGH SYRUP [Concomitant]
     Indication: HEADACHE

REACTIONS (1)
  - NO ADVERSE EVENT [None]
